FAERS Safety Report 7630233-2 (Version None)
Quarter: 2011Q3

REPORT INFORMATION
  Report Type: 
  Country: None (occurrence: None)
  Receive Date: 20110722
  Receipt Date: 20110713
  Transmission Date: 20111222
  Serious: Yes (Hospitalization)
  Sender: FDA-Public Use
  Company Number: US-UCBSA-037237

PATIENT
  Sex: Female
  Weight: 61.3 kg

DRUGS (3)
  1. SYNTHROID [Concomitant]
     Dosage: SINCE 9 WEEKS OLD
     Dates: start: 20110101
  2. OMEPRAZOLE [Concomitant]
     Dosage: THERAPY DATES FROM: X 1 YEAR
     Dates: start: 20100101
  3. CIMZIA [Suspect]
     Indication: CROHN'S DISEASE
     Route: 058
     Dates: start: 20100927

REACTIONS (3)
  - VOMITING [None]
  - GASTROINTESTINAL ULCER HAEMORRHAGE [None]
  - CHOLECYSTITIS [None]
